FAERS Safety Report 10306804 (Version 2)
Quarter: 2014Q3

REPORT INFORMATION
  Report Type: Spontaneous
  Country: SI (occurrence: SI)
  Receive Date: 20140715
  Receipt Date: 20140728
  Transmission Date: 20150326
  Serious: Yes (Hospitalization, Other)
  Sender: FDA-Public Use
  Company Number: PHHY2014SI084898

PATIENT
  Age: 67 Year
  Sex: Male

DRUGS (2)
  1. CISPLATIN. [Suspect]
     Active Substance: CISPLATIN
     Indication: OESOPHAGEAL CARCINOMA
  2. 5-FLUOROURACIL [Suspect]
     Active Substance: FLUOROURACIL
     Indication: OESOPHAGEAL CARCINOMA

REACTIONS (8)
  - Oesophagitis [Unknown]
  - Weight decreased [Unknown]
  - Oesophageal carcinoma [Unknown]
  - Dysphagia [Unknown]
  - Venous thrombosis [Unknown]
  - Infection [Unknown]
  - Neutropenia [Unknown]
  - Malignant neoplasm progression [Unknown]
